FAERS Safety Report 7444865-8 (Version None)
Quarter: 2011Q2

REPORT INFORMATION
  Report Type: 
  Country: None (occurrence: None)
  Receive Date: 20110426
  Receipt Date: 20110426
  Transmission Date: 20111010
  Serious: Yes (Hospitalization, Other)
  Sender: FDA-Public Use
  Company Number: None

PATIENT
  Age: 38 Year
  Sex: Female
  Weight: 55.3388 kg

DRUGS (1)
  1. BACTRIM DS [Suspect]
     Indication: UPPER RESPIRATORY TRACT INFECTION
     Dosage: 1 TABLET 2X A DAY PO
     Route: 048
     Dates: start: 20110408, end: 20110414

REACTIONS (10)
  - MYALGIA [None]
  - EYE PAIN [None]
  - MENORRHAGIA [None]
  - INFLUENZA [None]
  - NAUSEA [None]
  - HEADACHE [None]
  - PAIN [None]
  - DIZZINESS [None]
  - VISION BLURRED [None]
  - PYREXIA [None]
